FAERS Safety Report 16014382 (Version 2)
Quarter: 2019Q3

REPORT INFORMATION
  Report Type: Spontaneous
  Country: DE (occurrence: DE)
  Receive Date: 20190227
  Receipt Date: 20190906
  Transmission Date: 20191004
  Serious: Yes (Hospitalization)
  Sender: FDA-Public Use
  Company Number: PHHY2019DE031516

PATIENT
  Sex: Male

DRUGS (3)
  1. LEVOFLOXACIN - 1 A PHARMA [Suspect]
     Active Substance: LEVOFLOXACIN
     Indication: PRODUCT USED FOR UNKNOWN INDICATION
     Dosage: 1 DF, QD
     Route: 048
  2. FOSTER [Concomitant]
     Active Substance: BECLOMETHASONE\FORMOTEROL
     Indication: PRODUCT USED FOR UNKNOWN INDICATION
     Dosage: 1 HUB, BID
     Route: 065
     Dates: start: 20190204
  3. CODEINTROPFEN [Concomitant]
     Indication: PRODUCT USED FOR UNKNOWN INDICATION
     Dosage: 30 GGT, QD (IN THE EVENING)
     Route: 065
     Dates: start: 20190204

REACTIONS (4)
  - Dizziness [Recovered/Resolved]
  - Motor dysfunction [Recovered/Resolved]
  - Hypoaesthesia [Recovered/Resolved]
  - Miller Fisher syndrome [Recovered/Resolved]

NARRATIVE: CASE EVENT DATE: 2019
